FAERS Safety Report 14479754 (Version 1)
Quarter: 2018Q1

REPORT INFORMATION
  Report Type: Other
  Country: TN (occurrence: TN)
  Receive Date: 20180202
  Receipt Date: 20180202
  Transmission Date: 20180509
  Serious: No
  Sender: FDA-Public Use
  Company Number: TN-B. BRAUN MEDICAL INC.-2041277

PATIENT
  Age: 21 Year
  Sex: Female

DRUGS (1)
  1. DEXTROSE. [Suspect]
     Active Substance: DEXTROSE
     Indication: FLUID REPLACEMENT
     Route: 042

REACTIONS (1)
  - Wernicke^s encephalopathy [None]
